FAERS Safety Report 13507705 (Version 1)
Quarter: 2017Q2

REPORT INFORMATION
  Report Type: Spontaneous
  Country: US (occurrence: US)
  Receive Date: 20170503
  Receipt Date: 20170503
  Transmission Date: 20170830
  Serious: Yes (Other)
  Sender: FDA-Public Use
  Company Number: None

PATIENT
  Age: 56 Year
  Sex: Female
  Weight: 90 kg

DRUGS (5)
  1. LISINIPRIL [Concomitant]
  2. KEPPRA [Concomitant]
     Active Substance: LEVETIRACETAM
  3. FISH OIL [Concomitant]
     Active Substance: FISH OIL
  4. LIVOLON [Concomitant]
     Active Substance: TIBOLONE
  5. XIIDRA [Suspect]
     Active Substance: LIFITEGRAST
     Indication: PRODUCT SUBSTITUTION
     Dosage: ?          QUANTITY:1 DROP(S);?
     Route: 047
     Dates: start: 20170210, end: 20170315

REACTIONS (3)
  - Application site pain [None]
  - Dysgeusia [None]
  - Corneal graft rejection [None]

NARRATIVE: CASE EVENT DATE: 20170315
